FAERS Safety Report 7206540-4 (Version None)
Quarter: 2011Q1

REPORT INFORMATION
  Report Type: 
  Country: None (occurrence: None)
  Receive Date: 20110103
  Receipt Date: 20101221
  Transmission Date: 20110831
  Serious: Yes (Hospitalization)
  Sender: FDA-Public Use
  Company Number: PHHY2010JP80980

PATIENT
  Age: 85 Year
  Sex: Male

DRUGS (7)
  1. DIOVAN [Suspect]
     Indication: HYPERTENSION
     Dosage: 160 MG, QD
     Route: 048
  2. ADALAT CC [Concomitant]
     Dosage: 40 MG, UNK
     Route: 048
  3. ITOROL [Concomitant]
     Dosage: 40 MG, UNK
     Route: 048
  4. KERLONG [Concomitant]
     Dosage: 5 MG, UNK
     Route: 048
  5. ASPIRIN [Concomitant]
     Dosage: 100 MG, UNK
     Route: 048
  6. MAGMITT [Concomitant]
     Dosage: 1980 MG, UNK
     Route: 048
  7. RIZE [Concomitant]
     Dosage: 15 MG, UNK
     Route: 048

REACTIONS (3)
  - PLATELET COUNT DECREASED [None]
  - DISSEMINATED INTRAVASCULAR COAGULATION [None]
  - PNEUMONIA [None]
